FAERS Safety Report 16263413 (Version 1)
Quarter: 2019Q2

REPORT INFORMATION
  Report Type: Spontaneous
  Country: ES (occurrence: ES)
  Receive Date: 20190502
  Receipt Date: 20190502
  Transmission Date: 20190711
  Serious: Yes (Hospitalization, Other)
  Sender: FDA-Public Use
  Company Number: ES-ACCORD-125180

PATIENT
  Age: 58 Year
  Sex: Male

DRUGS (5)
  1. CYTARABINE. [Concomitant]
     Active Substance: CYTARABINE
     Indication: PROPHYLAXIS
     Route: 037
  2. RITUXIMAB. [Concomitant]
     Active Substance: RITUXIMAB
     Indication: B-CELL LYMPHOMA
  3. METHOTREXATE. [Suspect]
     Active Substance: METHOTREXATE
     Indication: PROPHYLAXIS
     Dosage: TOTAL DOSE OF 36 MG IN 3 NON-CONSECUTIVE DAYS
     Route: 037
  4. DEXAMETHASONE. [Concomitant]
     Active Substance: DEXAMETHASONE
     Indication: PROPHYLAXIS
     Route: 037
  5. CYCLOPHOSPHAMIDE/CYCLOPHOSPHAMIDE MONOHYDRATE [Concomitant]
     Indication: B-CELL LYMPHOMA

REACTIONS (3)
  - Urinary retention [Not Recovered/Not Resolved]
  - Paraplegia [Not Recovered/Not Resolved]
  - Polyneuropathy [Not Recovered/Not Resolved]
